FAERS Safety Report 20724282 (Version 2)
Quarter: 2022Q2

REPORT INFORMATION
  Report Type: Report from Study
  Country: CA (occurrence: CA)
  Receive Date: 20220419
  Receipt Date: 20220617
  Transmission Date: 20220720
  Serious: Yes (Other)
  Sender: FDA-Public Use
  Company Number: CA-JNJFOC-20210852607

PATIENT
  Age: 67 Year
  Sex: Male
  Weight: 78.3 kg

DRUGS (1)
  1. REMICADE [Suspect]
     Active Substance: INFLIXIMAB
     Indication: Colitis ulcerative
     Dosage: BATCH NUMBER LGM40012 X1; LIM52016 X 3
     Route: 042

REACTIONS (4)
  - Nephrolithiasis [Recovered/Resolved]
  - Inguinal hernia [Recovered/Resolved]
  - COVID-19 [Recovering/Resolving]
  - Tooth infection [Unknown]

NARRATIVE: CASE EVENT DATE: 20210816
